FAERS Safety Report 11690685 (Version 1)
Quarter: 2015Q4

REPORT INFORMATION
  Report Type: Spontaneous
  Country: US (occurrence: US)
  Receive Date: 20151102
  Receipt Date: 20151102
  Transmission Date: 20160304
  Serious: Yes (Other)
  Sender: FDA-Public Use
  Company Number: US-ENDO PHARMACEUTICALS INC.-2015-003689

PATIENT
  Sex: Male

DRUGS (1)
  1. DELATESTRYL [Suspect]
     Active Substance: TESTOSTERONE ENANTHATE
     Indication: ANDROGEN REPLACEMENT THERAPY
     Route: 065
     Dates: start: 201008, end: 201101

REACTIONS (3)
  - Splenic infarction [Unknown]
  - Thrombosis [Unknown]
  - Renal infarct [Unknown]

NARRATIVE: CASE EVENT DATE: 201101
